FAERS Safety Report 6607517-X (Version None)
Quarter: 2010Q1

REPORT INFORMATION
  Report Type: 
  Country: None (occurrence: None)
  Receive Date: 20100301
  Receipt Date: 20100217
  Transmission Date: 20100710
  Serious: Yes (Other)
  Sender: FDA-Public Use
  Company Number: PHHY2010ES08760

PATIENT
  Age: 70 Year
  Sex: Male

DRUGS (5)
  1. ZOMETA [Suspect]
     Indication: MULTIPLE MYELOMA
     Dosage: 4 MG, UNK
     Route: 042
     Dates: start: 20070101, end: 20091126
  2. STEROIDS NOS [Concomitant]
  3. BORTEZOMIB [Concomitant]
  4. SEPTRIN FORTE [Concomitant]
     Indication: PROPHYLAXIS
  5. ACYCLOVIR [Concomitant]
     Indication: PROPHYLAXIS

REACTIONS (3)
  - GINGIVAL ABSCESS [None]
  - OSTEONECROSIS [None]
  - TOOTH EXTRACTION [None]
